FAERS Safety Report 5179912-X (Version None)
Quarter: 2006Q4

REPORT INFORMATION
  Report Type: 
  Country: None (occurrence: None)
  Receive Date: 20061212
  Receipt Date: 20061121
  Transmission Date: 20070319
  Serious: Yes (Death, Hospitalization)
  Sender: FDA-Public Use
  Company Number: 2006144179

PATIENT
  Age: 65 Year
  Sex: Male

DRUGS (5)
  1. ADRIAMYCIN PFS [Suspect]
     Indication: PRIMARY EFFUSION LYMPHOMA
     Dosage: (CYCLICAL)
  2. VINCRISTINE SULFATE [Suspect]
     Indication: PRIMARY EFFUSION LYMPHOMA
     Dosage: (CYCLICAL)
  3. CYCLOPHOSPHAMIDE [Suspect]
     Indication: PRIMARY EFFUSION LYMPHOMA
     Dosage: (CYCLICAL)
  4. PREDNISONE TAB [Suspect]
     Indication: PRIMARY EFFUSION LYMPHOMA
     Dosage: (CYCLICAL)
  5. LAMIVUDINE [Suspect]
     Indication: PRIMARY EFFUSION LYMPHOMA
     Dosage: (CYCLICAL)

REACTIONS (9)
  - ANAEMIA [None]
  - BONE MARROW TOXICITY [None]
  - GENERAL PHYSICAL HEALTH DETERIORATION [None]
  - HEPATIC ENCEPHALOPATHY [None]
  - HYPERGLYCAEMIA [None]
  - NEUTROPENIA [None]
  - REFUSAL OF TREATMENT BY PATIENT [None]
  - SEPTIC SHOCK [None]
  - THROMBOCYTOPENIA [None]
